FAERS Safety Report 19877229 (Version 2)
Quarter: 2021Q4

REPORT INFORMATION
  Report Type: Spontaneous
  Country: BE (occurrence: BE)
  Receive Date: 20210924
  Receipt Date: 20211202
  Transmission Date: 20220303
  Serious: Yes (Hospitalization, Other)
  Sender: FDA-Public Use
  Company Number: BE-SERVIER-S21007235

PATIENT
  Age: 85 Year
  Sex: Female
  Weight: 72.6 kg

DRUGS (12)
  1. BISOPROLOL [Suspect]
     Active Substance: BISOPROLOL
     Indication: Hypertension
     Dosage: 5 MILLIGRAM
     Route: 065
     Dates: start: 20210830
  2. LONSURF [Suspect]
     Active Substance: TIPIRACIL HYDROCHLORIDE\TRIFLURIDINE
     Indication: Colon cancer metastatic
     Dosage: 70 MILLIGRAM/SQ. METER
     Route: 048
     Dates: start: 20210518
  3. LONSURF [Suspect]
     Active Substance: TIPIRACIL HYDROCHLORIDE\TRIFLURIDINE
     Dosage: 60 MILLIGRAM/SQ. METER
     Route: 048
     Dates: start: 20210622
  4. LONSURF [Suspect]
     Active Substance: TIPIRACIL HYDROCHLORIDE\TRIFLURIDINE
     Dosage: 50 MILLIGRAM/SQ. METER
     Route: 048
     Dates: start: 20210727
  5. DAFALGAN [Concomitant]
     Active Substance: ACETAMINOPHEN
     Indication: Headache
     Dosage: 1 GRAM PRN
     Route: 065
     Dates: start: 202003
  6. AMITRIPTYLINE HYDROCHLORIDE [Concomitant]
     Active Substance: AMITRIPTYLINE HYDROCHLORIDE
     Indication: Headache
     Dosage: 10 MILLIGRAM, ONCE A DAY
     Route: 065
     Dates: start: 20210427
  7. Covid-19 vaccine [Concomitant]
     Indication: Product used for unknown indication
     Dosage: UNK (FIRST DOSE)
     Route: 065
     Dates: start: 20210512, end: 20210512
  8. Covid-19 vaccine [Concomitant]
     Dosage: UNK (SECOND DOSE)
     Route: 065
     Dates: start: 20210623, end: 20210623
  9. BUMETANIDE [Concomitant]
     Active Substance: BUMETANIDE
     Indication: Oedema peripheral
     Dosage: 1 MILLIGRAM, ONCE A DAY
     Route: 065
     Dates: start: 202003, end: 20210601
  10. BUMETANIDE [Concomitant]
     Active Substance: BUMETANIDE
     Dosage: 1 MILLIGRAM
     Route: 065
     Dates: start: 20210601
  11. Eulitop [Concomitant]
     Indication: Hypercholesterolaemia
     Dosage: 400 MILLIGRAM, ONCE A DAY
     Route: 065
     Dates: start: 200412
  12. NADROPARIN CALCIUM [Concomitant]
     Active Substance: NADROPARIN CALCIUM
     Indication: Pulmonary embolism
     Dosage: 0.3 MILLILITER, ONCE A DAY
     Route: 065
     Dates: start: 20200505

REACTIONS (7)
  - Hypokalaemia [Recovered/Resolved]
  - Neutrophil count decreased [Not Recovered/Not Resolved]
  - Anaemia [Not Recovered/Not Resolved]
  - Fatigue [Not Recovered/Not Resolved]
  - Vomiting [Not Recovered/Not Resolved]
  - Asthenia [Recovered/Resolved]
  - Platelet count decreased [Not Recovered/Not Resolved]

NARRATIVE: CASE EVENT DATE: 20210615
